FAERS Safety Report 5801051-2 (Version None)
Quarter: 2008Q3

REPORT INFORMATION
  Report Type: 
  Country: None (occurrence: None)
  Receive Date: 20080704
  Receipt Date: 20080626
  Transmission Date: 20090109
  Serious: Yes (Hospitalization, Other)
  Sender: FDA-Public Use
  Company Number: US-ELI_LILLY_AND_COMPANY-US200806005897

PATIENT
  Sex: Male

DRUGS (1)
  1. HUMALOG [Suspect]
     Dates: start: 19880101

REACTIONS (6)
  - BLINDNESS [None]
  - DRUG DISPENSING ERROR [None]
  - LEG AMPUTATION [None]
  - SKIN LESION EXCISION [None]
  - VISION BLURRED [None]
  - VISUAL ACUITY REDUCED [None]
